FAERS Safety Report 25889623 (Version 1)
Quarter: 2025Q4

REPORT INFORMATION
  Report Type: Spontaneous
  Country: IN (occurrence: IN)
  Receive Date: 20251007
  Receipt Date: 20251007
  Transmission Date: 20260118
  Serious: Yes (Other)
  Sender: MACLEODS
  Company Number: IN-MLMSERVICE-20250919-PI650376-00322-3

PATIENT

DRUGS (1)
  1. TRAMADOL [Suspect]
     Active Substance: TRAMADOL
     Indication: Arthralgia
     Route: 030

REACTIONS (1)
  - Embolia cutis medicamentosa [Unknown]
